FAERS Safety Report 7075555-1 (Version None)
Quarter: 2010Q4

REPORT INFORMATION
  Report Type: 
  Country: None (occurrence: None)
  Receive Date: 20101030
  Receipt Date: 20100929
  Transmission Date: 20110411
  Serious: No
  Sender: FDA-Public Use
  Company Number: US-WYE-H17880310

PATIENT
  Sex: Female
  Weight: 52.21 kg

DRUGS (2)
  1. PRISTIQ [Suspect]
     Indication: DEPRESSION
     Route: 048
     Dates: start: 20100901
  2. KLONOPIN [Interacting]
     Dosage: UNKNOWN

REACTIONS (5)
  - ANAEMIA [None]
  - BURNING SENSATION [None]
  - DRUG INTERACTION [None]
  - PARAESTHESIA [None]
  - PRURITUS [None]
